FAERS Safety Report 5699999-5 (Version None)
Quarter: 2008Q2

REPORT INFORMATION
  Report Type: 
  Country: None (occurrence: None)
  Receive Date: 20080410
  Receipt Date: 20080327
  Transmission Date: 20081010
  Serious: Yes (Hospitalization)
  Sender: FDA-Public Use
  Company Number: JP-ASTRAZENECA-2007SE00451

PATIENT
  Sex: Female

DRUGS (6)
  1. BLOPRESS TABLETS 8 [Suspect]
     Indication: HYPERTENSION
     Route: 048
     Dates: start: 20020603, end: 20040905
  2. BLOPRESS TABLETS 8 [Suspect]
     Route: 048
     Dates: start: 20050616, end: 20050616
  3. SERENAMIN [Concomitant]
     Route: 048
     Dates: start: 20001025, end: 20040905
  4. COMELIAN [Concomitant]
     Route: 048
     Dates: start: 20030317, end: 20040905
  5. FRANDOL [Concomitant]
     Route: 048
     Dates: start: 20030414
  6. ALTAT [Concomitant]
     Route: 048
     Dates: start: 20030212, end: 20040905

REACTIONS (1)
  - ACUTE GENERALISED EXANTHEMATOUS PUSTULOSIS [None]
